FAERS Safety Report 19872914 (Version 1)
Quarter: 2021Q3

REPORT INFORMATION
  Report Type: Spontaneous
  Country: US (occurrence: US)
  Receive Date: 20210923
  Receipt Date: 20210923
  Transmission Date: 20211014
  Serious: Yes (Death, Hospitalization)
  Sender: FDA-Public Use
  Company Number: None

PATIENT
  Age: 71 Year
  Sex: Male
  Weight: 109 kg

DRUGS (4)
  1. ALBUTEROL SULFATE. [Concomitant]
     Active Substance: ALBUTEROL SULFATE
     Dates: start: 20210907, end: 20210907
  2. ASPIRIN 324 MG [Concomitant]
     Dates: start: 20210907, end: 20210907
  3. ISOVUE 370 [Suspect]
     Active Substance: IOPAMIDOL
     Indication: COMPUTERISED TOMOGRAM THORAX
     Dosage: ?          OTHER FREQUENCY:ONCE;?
     Route: 040
     Dates: start: 20210907, end: 20210907
  4. ISOVUE 370 [Concomitant]
     Active Substance: IOPAMIDOL
     Dates: start: 20210907, end: 20210907

REACTIONS (4)
  - Nervous system disorder [None]
  - Pulse absent [None]
  - Oral discomfort [None]
  - Agonal respiration [None]

NARRATIVE: CASE EVENT DATE: 20210907
